FAERS Safety Report 11117013 (Version 1)
Quarter: 2015Q2

REPORT INFORMATION
  Report Type: Spontaneous
  Country: US (occurrence: US)
  Receive Date: 20150515
  Receipt Date: 20150515
  Transmission Date: 20150821
  Serious: No
  Sender: FDA-Public Use
  Company Number: US-PFIZER INC-2015155865

PATIENT
  Age: 81 Year
  Sex: Female

DRUGS (11)
  1. LYRICA [Suspect]
     Active Substance: PREGABALIN
     Indication: SPINAL COLUMN STENOSIS
     Dosage: 25 MG, 2X/DAY
  2. LYRICA [Suspect]
     Active Substance: PREGABALIN
     Dosage: 25MG CAPSULE IN THE MORNING AND 50MG CAPSULE LATER IN THE DAY
  3. CALCIUM MAGNESIUM ZINC [Concomitant]
     Active Substance: CALCIUM\MAGNESIUM\ZINC
     Dosage: UNK, AS NEEDED (1 TABLESPOON, PM)
  4. LYRICA [Suspect]
     Active Substance: PREGABALIN
     Dosage: 75 MG, UNK
  5. VISION CLEAR [Concomitant]
     Dosage: UNK (2 CAPSULES OF B, AM; 1 OF A, PM)
  6. OMEGA MAX [Concomitant]
     Dosage: UNK
  7. COENZYME Q10 [Concomitant]
     Active Substance: UBIDECARENONE
     Dosage: 3 DF, DAILY
  8. SOOTHE [Concomitant]
     Active Substance: BISMUTH SUBSALICYLATE\GLYCERIN\PROPYLENE GLYCOL
     Dosage: 1 GTT, 3X/DAY (AS NEEDED)
  9. LYRICA [Suspect]
     Active Substance: PREGABALIN
     Dosage: 50 MG, 1X/DAY
  10. ASCORBIC ACID. [Concomitant]
     Active Substance: ASCORBIC ACID
     Dosage: 1 DF, 1X/DAY
  11. VITAMIN D3 [Concomitant]
     Active Substance: CHOLECALCIFEROL
     Dosage: 2000 IU, AS NEEDED

REACTIONS (3)
  - Pain [Recovered/Resolved]
  - Vision blurred [Unknown]
  - Dizziness [Unknown]
